FAERS Safety Report 12228381 (Version 1)
Quarter: 2016Q1

REPORT INFORMATION
  Report Type: Spontaneous
  Country: US (occurrence: None)
  Receive Date: 20160330
  Receipt Date: 20160330
  Transmission Date: 20160526
  Serious: Yes (Hospitalization)
  Sender: FDA-Public Use
  Company Number: None

PATIENT
  Age: 55 Year
  Sex: Male
  Weight: 61.6 kg

DRUGS (8)
  1. INSULIN [Concomitant]
     Active Substance: INSULIN NOS
  2. OXYCODONE [Concomitant]
     Active Substance: OXYCODONE
  3. FLUOCINONIDE. [Concomitant]
     Active Substance: FLUOCINONIDE
  4. FOLIC ACID. [Concomitant]
     Active Substance: FOLIC ACID
  5. GRALISE [Concomitant]
     Active Substance: GABAPENTIN
  6. FUROSEMIDE. [Concomitant]
     Active Substance: FUROSEMIDE
  7. ATENOLOL. [Concomitant]
     Active Substance: ATENOLOL
  8. HARVONI [Suspect]
     Active Substance: LEDIPASVIR\SOFOSBUVIR
     Indication: HEPATITIS C
     Dosage: 90/400MG 1XDAILY ORAL
     Route: 048
     Dates: start: 20150715, end: 20151007

REACTIONS (2)
  - Nephrotic syndrome [None]
  - Diabetic nephropathy [None]

NARRATIVE: CASE EVENT DATE: 20150922
